FAERS Safety Report 4589656-0 (Version None)
Quarter: 2005Q1

REPORT INFORMATION
  Report Type: 
  Country: None (occurrence: None)
  Receive Date: 20050217
  Receipt Date: 20050131
  Transmission Date: 20050727
  Serious: No
  Sender: FDA-Public Use
  Company Number: 05H-087-0289647-00

PATIENT

DRUGS (1)
  1. DIAZEPAM [Suspect]
     Indication: STATUS EPILEPTICUS
     Dosage: INTRAVENOUS
     Route: 042

REACTIONS (1)
  - RESPIRATORY DEPRESSION [None]
